FAERS Safety Report 8678155 (Version 2)
Quarter: 2012Q4

REPORT INFORMATION
  Report Type: 
  Country: US (occurrence: US)
  Receive Date: 20120723
  Receipt Date: 20121010
  Transmission Date: 20130627
  Serious: Yes (Hospitalization)
  Sender: FDA-Public Use
  Company Number: US-ELI_LILLY_AND_COMPANY-US201207003206

PATIENT
  Age: 72 Year
  Sex: Female

DRUGS (11)
  1. OLANZAPINE [Suspect]
     Dosage: 5 mg, UNK
     Dates: start: 2011
  2. OLANZAPINE [Suspect]
     Dosage: 2.5 mg, qod
     Dates: start: 20120627
  3. OLANZAPINE [Suspect]
     Dosage: 2.5 mg, qd
  4. ZYPREXA ZYDIS [Suspect]
     Indication: THINKING ABNORMAL
     Dosage: 5 mg, UNK
  5. ZYPREXA ZYDIS [Suspect]
     Dosage: 5 mg, UNK
  6. ZYPREXA [Concomitant]
     Indication: DELUSION
     Dosage: 5 mg, UNK
  7. ATENOLOL [Concomitant]
  8. BENICAR [Concomitant]
  9. NORVASC [Concomitant]
  10. SYNTHROID [Concomitant]
  11. LOVAZA [Concomitant]

REACTIONS (11)
  - Delusion [Recovered/Resolved]
  - Dysphagia [Recovered/Resolved]
  - Tremor [Not Recovered/Not Resolved]
  - Muscle twitching [Recovered/Resolved]
  - Aptyalism [Recovered/Resolved]
  - Insomnia [Recovered/Resolved]
  - Weight increased [Not Recovered/Not Resolved]
  - Dry mouth [Recovered/Resolved]
  - Diabetes mellitus [Not Recovered/Not Resolved]
  - Drug ineffective [Recovered/Resolved]
  - Intentional drug misuse [Recovered/Resolved]
